FAERS Safety Report 20883417 (Version 1)
Quarter: 2022Q2

REPORT INFORMATION
  Report Type: Spontaneous
  Country: US (occurrence: None)
  Receive Date: 20220526
  Receipt Date: 20220526
  Transmission Date: 20220720
  Serious: Yes (Life-Threatening, Hospitalization)
  Sender: FDA-Public Use
  Company Number: None

PATIENT
  Age: 58 Year
  Sex: Male
  Weight: 126 kg

DRUGS (12)
  1. XARELTO [Suspect]
     Active Substance: RIVAROXABAN
     Indication: Atrial fibrillation
     Dates: start: 20210501, end: 20220526
  2. XARELTO [Suspect]
     Active Substance: RIVAROXABAN
     Indication: Cardiomyopathy
  3. atorvasatatin [Concomitant]
  4. BD Ultra-Fine Short Pen [Concomitant]
  5. bupropine [Concomitant]
  6. DILT-XR [Concomitant]
  7. FENOFIBRATE [Concomitant]
     Active Substance: FENOFIBRATE
  8. FUROSEMIDE [Concomitant]
     Active Substance: FUROSEMIDE
  9. GLUCAGON [Concomitant]
     Active Substance: GLUCAGON
  10. DEXTROSE [Concomitant]
     Active Substance: DEXTROSE
  11. LANTUS [Concomitant]
     Active Substance: INSULIN GLARGINE
  12. METFORMIN [Concomitant]
     Active Substance: METFORMIN HYDROCHLORIDE

REACTIONS (5)
  - Haemorrhage intracranial [None]
  - International normalised ratio increased [None]
  - Aphasia [None]
  - Facial paralysis [None]
  - Infusion related reaction [None]

NARRATIVE: CASE EVENT DATE: 20220526
